FAERS Safety Report 12256089 (Version 1)
Quarter: 2016Q2

REPORT INFORMATION
  Report Type: Spontaneous
  Country: US (occurrence: None)
  Receive Date: 20160411
  Receipt Date: 20160411
  Transmission Date: 20160815
  Serious: No
  Sender: FDA-Public Use
  Company Number: None

PATIENT
  Sex: Female

DRUGS (3)
  1. INVOKANA [Suspect]
     Active Substance: CANAGLIFLOZIN
  2. VICTOZA [Suspect]
     Active Substance: LIRAGLUTIDE
  3. GABAPENTIN. [Suspect]
     Active Substance: GABAPENTIN

REACTIONS (14)
  - Weight increased [None]
  - Multiple allergies [None]
  - Neuropathy peripheral [None]
  - Injection site bruising [None]
  - Renal disorder [None]
  - Blood glucose decreased [None]
  - Emotional distress [None]
  - Pain in extremity [None]
  - Peripheral swelling [None]
  - Pruritus [None]
  - Rash [None]
  - Surgery [None]
  - Pancreatitis [None]
  - Blood glucose increased [None]
